FAERS Safety Report 9275387 (Version 2)
Quarter: 2013Q2

REPORT INFORMATION
  Report Type: Spontaneous
  Country: US (occurrence: US)
  Receive Date: 20130507
  Receipt Date: 20130605
  Transmission Date: 20140414
  Serious: No
  Sender: FDA-Public Use
  Company Number: US-PFIZER INC-2013136389

PATIENT
  Age: 89 Year
  Sex: Female

DRUGS (2)
  1. LEVOTHYROXINE SODIUM [Suspect]
     Indication: HYPOTHYROIDISM
     Dosage: 25 UG, 1X/DAY (ONE TABLET EVERY MORNING ON AN EMPTY STOMACH)
     Route: 048
     Dates: start: 20120203
  2. LEVOTHYROXINE SODIUM [Suspect]
     Dosage: 50 UG, 1X/DAY (ONE TABLET EVERY MORNING ON AN EMPTY STOMACH)
     Route: 048
     Dates: end: 20130415

REACTIONS (1)
  - Rash [Unknown]
